FAERS Safety Report 23895377 (Version 1)
Quarter: 2024Q2

REPORT INFORMATION
  Report Type: Spontaneous
  Country: US (occurrence: None)
  Receive Date: 20240523
  Receipt Date: 20240523
  Transmission Date: 20240716
  Serious: Yes (Death)
  Sender: FDA-Public Use
  Company Number: None

PATIENT
  Age: 80 Year
  Sex: Female

DRUGS (2)
  1. AZITHROMYCIN [Suspect]
     Active Substance: AZITHROMYCIN
     Indication: Pneumonia
     Dosage: FREQUENCY : DAILY;?
     Route: 041
     Dates: start: 20240521, end: 20240522
  2. AMIODARONE [Concomitant]
     Active Substance: AMIODARONE
     Dosage: FREQUENCY : DAILY;?

REACTIONS (4)
  - Mental status changes [None]
  - Pneumonia [None]
  - Torsade de pointes [None]
  - Cardio-respiratory arrest [None]

NARRATIVE: CASE EVENT DATE: 20240522
